FAERS Safety Report 16938004 (Version 1)
Quarter: 2019Q4

REPORT INFORMATION
  Report Type: Spontaneous
  Country: US (occurrence: US)
  Receive Date: 20191018
  Receipt Date: 20191018
  Transmission Date: 20200122
  Serious: Yes (Life-Threatening, Other)
  Sender: FDA-Public Use
  Company Number: US-SHIRE-US201933117

PATIENT
  Age: 62 Year
  Sex: Female

DRUGS (1)
  1. C1 INHIBITOR (HUMAN) [Suspect]
     Active Substance: HUMAN C1-ESTERASE INHIBITOR
     Indication: HEREDITARY ANGIOEDEMA WITH C1 ESTERASE INHIBITOR DEFICIENCY
     Dosage: 1500 INTERNATIONAL UNIT, EVERY 4 DAYS
     Route: 042

REACTIONS (3)
  - Laryngeal oedema [Recovering/Resolving]
  - Hereditary angioedema [Recovering/Resolving]
  - Therapeutic product effect incomplete [Unknown]
